FAERS Safety Report 21212969 (Version 2)
Quarter: 2022Q3

REPORT INFORMATION
  Report Type: Spontaneous
  Country: DE (occurrence: DE)
  Receive Date: 20220815
  Receipt Date: 20220820
  Transmission Date: 20221027
  Serious: Yes (Hospitalization, Other)
  Sender: FDA-Public Use
  Company Number: DE-VER-202200015

PATIENT
  Sex: Male

DRUGS (2)
  1. TRIPTORELIN PAMOATE [Suspect]
     Active Substance: TRIPTORELIN PAMOATE
     Indication: Paedophilia
     Route: 065
     Dates: start: 2020
  2. TRIPTORELIN PAMOATE [Suspect]
     Active Substance: TRIPTORELIN PAMOATE
     Indication: Off label use
     Route: 065
     Dates: start: 2020

REACTIONS (3)
  - Skin disorder [Unknown]
  - Lymphadenectomy [Unknown]
  - Malignant melanoma [Unknown]
